FAERS Safety Report 16196402 (Version 1)
Quarter: 2019Q2

REPORT INFORMATION
  Report Type: Spontaneous
  Country: ZA (occurrence: ZA)
  Receive Date: 20190415
  Receipt Date: 20190415
  Transmission Date: 20190711
  Serious: Yes (Death, Other)
  Sender: FDA-Public Use
  Company Number: ZA-LUPIN PHARMACEUTICALS INC.-2019-02319

PATIENT
  Sex: Male

DRUGS (5)
  1. RISPERLET [Suspect]
     Active Substance: RISPERIDONE
     Indication: MENTAL DISORDER
     Dosage: 0.5 MILLIGRAM
     Route: 048
     Dates: start: 201811
  2. AMLOC 5 MG [Suspect]
     Active Substance: AMLODIPINE BESYLATE
     Indication: HYPERTENSION
     Dosage: 5 MILLIGRAM
     Route: 048
     Dates: start: 201903
  3. ADCO ALZAM [Suspect]
     Active Substance: ALPRAZOLAM
     Indication: ANXIETY
     Dosage: 0.25 MILLIGRAM
     Route: 048
     Dates: start: 201811
  4. EPITEC [Suspect]
     Active Substance: LAMOTRIGINE
     Indication: EPILEPSY
     Dosage: 200 MILLIGRAM
     Route: 048
     Dates: start: 201811
  5. ALTOSEC [OMEPRAZOLE] [Suspect]
     Active Substance: OMEPRAZOLE
     Indication: DYSPEPSIA
     Dosage: 20 MILLIGRAM
     Route: 048
     Dates: start: 201812

REACTIONS (1)
  - Death [Fatal]
